FAERS Safety Report 10383677 (Version 1)
Quarter: 2014Q3

REPORT INFORMATION
  Report Type: Spontaneous
  Country: US (occurrence: US)
  Receive Date: 20140814
  Receipt Date: 20140814
  Transmission Date: 20150326
  Serious: No
  Sender: FDA-Public Use
  Company Number: US-AMGEN-USASP2014061729

PATIENT
  Age: 42 Year
  Sex: Female

DRUGS (1)
  1. ENBREL [Suspect]
     Active Substance: ETANERCEPT
     Indication: RHEUMATOID ARTHRITIS
     Dosage: 50 MG/ML, WEEKLY
     Route: 058
     Dates: start: 20140709, end: 2014

REACTIONS (7)
  - Injection site warmth [Unknown]
  - Pyrexia [Unknown]
  - Injection site urticaria [Unknown]
  - Injection site pruritus [Unknown]
  - Injection site swelling [Unknown]
  - Hypersensitivity [Unknown]
  - Injection site erythema [Unknown]

NARRATIVE: CASE EVENT DATE: 201407
